FAERS Safety Report 24154242 (Version 2)
Quarter: 2025Q2

REPORT INFORMATION
  Report Type: Spontaneous
  Country: CA (occurrence: CA)
  Receive Date: 20240730
  Receipt Date: 20250502
  Transmission Date: 20250717
  Serious: Yes (Death)
  Sender: CELLTRION
  Company Number: CA-CELLTRION INC.-2023CA015857

PATIENT

DRUGS (15)
  1. YUFLYMA [Suspect]
     Active Substance: ADALIMUMAB-AATY
     Indication: Rheumatoid arthritis
     Dosage: 40 MG , WEEKS-2 WEEKS
     Route: 058
     Dates: start: 20230728
  2. YUFLYMA [Suspect]
     Active Substance: ADALIMUMAB-AATY
     Dosage: 40 MG, 1 EVERY 2 WEEKS
     Route: 058
  3. ACETAMINOPHEN [Concomitant]
     Active Substance: ACETAMINOPHEN
  4. ACETAMINOPHEN [Concomitant]
     Active Substance: ACETAMINOPHEN
  5. CANDESARTAN [Concomitant]
     Active Substance: CANDESARTAN
  6. FEBUXOSTAT [Concomitant]
     Active Substance: FEBUXOSTAT
  7. HYDROMORPHONE [Concomitant]
     Active Substance: HYDROMORPHONE
  8. HYDROMORPHONE [Concomitant]
     Active Substance: HYDROMORPHONE
  9. LEVOTHYROXINE [Concomitant]
     Active Substance: LEVOTHYROXINE
  10. LEVOTHYROXINE SODIUM [Concomitant]
     Active Substance: LEVOTHYROXINE SODIUM
  11. PANTOPRAZOLE [Concomitant]
     Active Substance: PANTOPRAZOLE
  12. PANTOPRAZOLE [Concomitant]
     Active Substance: PANTOPRAZOLE
  13. PRAMIPEXOLE DIHYDROCHLORIDE [Concomitant]
     Active Substance: PRAMIPEXOLE DIHYDROCHLORIDE
  14. PREGABALIN [Concomitant]
     Active Substance: PREGABALIN
  15. PREGABALIN [Concomitant]
     Active Substance: PREGABALIN

REACTIONS (3)
  - Death [Fatal]
  - Hot flush [Fatal]
  - Inflammation [Fatal]

NARRATIVE: CASE EVENT DATE: 20230728
